FAERS Safety Report 10573409 (Version 1)
Quarter: 2014Q4

REPORT INFORMATION
  Report Type: Spontaneous
  Country: ID (occurrence: None)
  Receive Date: 20141030
  Receipt Date: 20141030
  Transmission Date: 20150529
  Serious: Yes (Hospitalization)
  Sender: FDA-Public Use
  Company Number: PHHY2013ID151690

PATIENT
  Age: 17 Year
  Sex: Male

DRUGS (1)
  1. SEBIVO [Suspect]
     Active Substance: TELBIVUDINE
     Indication: CHRONIC HEPATITIS B
     Route: 048

REACTIONS (1)
  - Lactic acidosis [None]
